FAERS Safety Report 9939333 (Version 1)
Quarter: 2014Q1

REPORT INFORMATION
  Report Type: Report from Study
  Country: US (occurrence: US)
  Receive Date: 20140303
  Receipt Date: 20140303
  Transmission Date: 20141002
  Serious: No
  Sender: FDA-Public Use
  Company Number: US-ABBVIE-13P-163-1038968-00

PATIENT
  Sex: Male

DRUGS (7)
  1. HUMIRA [Suspect]
     Indication: CROHN^S DISEASE
     Dosage: 160MG ON DAY 1, THEN 80MG ON DAY 15. DAY 29 BEGIN 40MG EOW
     Dates: start: 20121226, end: 20121226
  2. HUMIRA [Suspect]
     Dosage: 160MG ON DAY 1, THEN 80MG ON DAY 15. DAY 29 BEGIN 40MG EOW
  3. HUMIRA [Suspect]
     Dosage: 160MG ON DAY 1, THEN 80MG ON DAY 15. DAY 29 BEGIN 40MG EOW
  4. HUMIRA [Suspect]
     Dosage: 160MG ON DAY 1, THEN 80MG ON DAY 15. DAY 29 BEGIN 40MG EOW
  5. OMEPRAZOLE [Concomitant]
     Indication: PRODUCT USED FOR UNKNOWN INDICATION
  6. GABAPENTIN [Concomitant]
     Indication: PRODUCT USED FOR UNKNOWN INDICATION
  7. CALCIUM GLUC+VIT D [Concomitant]
     Indication: PRODUCT USED FOR UNKNOWN INDICATION

REACTIONS (1)
  - Photosensitivity reaction [Not Recovered/Not Resolved]
